FAERS Safety Report 9386929 (Version 1)
Quarter: 2013Q3

REPORT INFORMATION
  Report Type: Spontaneous
  Country: US (occurrence: US)
  Receive Date: 20130708
  Receipt Date: 20130708
  Transmission Date: 20140515
  Serious: Yes (Other)
  Sender: FDA-Public Use
  Company Number: US-BAYER-2013-080481

PATIENT
  Sex: Female

DRUGS (8)
  1. ALEVE TABLET [Suspect]
     Dosage: 2 TAB 2-3 TIMES A DAY
  2. NEXAVAR [Suspect]
     Dosage: UNK
     Dates: end: 20130606
  3. SUTENT [Concomitant]
     Dosage: UNK
     Dates: start: 20130607
  4. LAETRILE [Concomitant]
  5. ZOFRAN [Concomitant]
  6. PERCOCET [Concomitant]
  7. ZANTAC [Concomitant]
  8. IRON TABLETS [Concomitant]

REACTIONS (13)
  - Haemorrhage [None]
  - Extra dose administered [None]
  - Flank pain [None]
  - Renal neoplasm [None]
  - Metastases to lung [None]
  - Metastases to liver [None]
  - Dysgeusia [None]
  - Glossitis [None]
  - Glossodynia [None]
  - Rash [None]
  - Decreased appetite [None]
  - Dry skin [None]
  - Nausea [None]
